FAERS Safety Report 16226320 (Version 1)
Quarter: 2019Q2

REPORT INFORMATION
  Report Type: Spontaneous
  Country: US (occurrence: US)
  Receive Date: 20190423
  Receipt Date: 20190423
  Transmission Date: 20190711
  Serious: No
  Sender: FDA-Public Use
  Company Number: US-TEVA-2019-US-1031749

PATIENT
  Age: 56 Year
  Sex: Female

DRUGS (1)
  1. FLUTICASONE PROPIONATE / SALMETEROL XINOFOATE [Suspect]
     Active Substance: FLUTICASONE PROPIONATE\SALMETEROL XINAFOATE
     Dosage: FLUTICASONE PROPIONATE / SALMETEROL XINOFOATE,232 MCG / 14 MCG
     Route: 065

REACTIONS (4)
  - Throat irritation [Unknown]
  - Product substitution issue [Unknown]
  - Asthma [Unknown]
  - Chest discomfort [Unknown]
